FAERS Safety Report 8553517-2 (Version None)
Quarter: 2012Q3

REPORT INFORMATION
  Report Type: 
  Country: None (occurrence: None)
  Receive Date: 20120731
  Receipt Date: 20120720
  Transmission Date: 20120928
  Serious: Yes (Other)
  Sender: FDA-Public Use
  Company Number: US-BAYER-2012-073300

PATIENT
  Age: 60 Year
  Sex: Female

DRUGS (1)
  1. NEXAVAR [Suspect]
     Indication: RENAL CANCER
     Dosage: 400 MG, BID
     Dates: start: 20120707, end: 20120701

REACTIONS (5)
  - PAIN OF SKIN [None]
  - APHAGIA [None]
  - BLISTER [None]
  - DYSPHONIA [None]
  - PLICATED TONGUE [None]
